FAERS Safety Report 24355076 (Version 1)
Quarter: 2024Q3

REPORT INFORMATION
  Report Type: Spontaneous
  Country: DE (occurrence: DE)
  Receive Date: 20240923
  Receipt Date: 20240923
  Transmission Date: 20241016
  Serious: Yes (Hospitalization)
  Sender: ABBVIE
  Company Number: DE-ABBVIE-5930854

PATIENT
  Sex: Male

DRUGS (1)
  1. SKYRIZI [Suspect]
     Active Substance: RISANKIZUMAB-RZAA
     Indication: Psoriasis
     Dosage: FORM STRENGTH: 150 MILLIGRAM,?LAST ADMIN DATE: SEP 2024
     Route: 058
     Dates: start: 20240916

REACTIONS (1)
  - Lip and/or oral cavity cancer [Recovered/Resolved]

NARRATIVE: CASE EVENT DATE: 20240901
